FAERS Safety Report 25705205 (Version 1)
Quarter: 2025Q3

REPORT INFORMATION
  Report Type: Spontaneous
  Country: CA (occurrence: GB)
  Receive Date: 20250820
  Receipt Date: 20250820
  Transmission Date: 20251021
  Serious: Yes (Other)
  Sender: AUROBINDO
  Company Number: GB-MHRA-MIDB-a6bc81a9-2478-404a-862a-8f063d6de34b

PATIENT
  Age: 24 Year
  Sex: Female

DRUGS (4)
  1. NITROFURANTOIN [Suspect]
     Active Substance: NITROFURANTOIN
     Indication: Product used for unknown indication
     Dosage: 50 MILLIGRAM, ONCE A DAY (50MG QDS)
     Route: 065
  2. ENOXAPARIN [Concomitant]
     Active Substance: ENOXAPARIN
     Indication: Product used for unknown indication
     Route: 065
  3. ONDANSETRON [Concomitant]
     Active Substance: ONDANSETRON
     Indication: Product used for unknown indication
     Route: 065
  4. MORPHINE [Concomitant]
     Active Substance: MORPHINE
     Indication: Product used for unknown indication
     Route: 065

REACTIONS (1)
  - Liver function test abnormal [Unknown]
